FAERS Safety Report 5217383-5 (Version None)
Quarter: 2007Q1

REPORT INFORMATION
  Report Type: 
  Country: None (occurrence: None)
  Receive Date: 20070124
  Receipt Date: 20060130
  Transmission Date: 20070707
  Serious: No
  Sender: FDA-Public Use
  Company Number: US-GLAXOSMITHKLINE-A0591470A

PATIENT
  Age: 45 Year
  Sex: Female

DRUGS (3)
  1. PAXIL CR [Suspect]
     Dosage: 25MG PER DAY
     Route: 048
     Dates: start: 20051211
  2. XANAX [Concomitant]
  3. ALLERGY MEDICATION [Concomitant]

REACTIONS (1)
  - DRUG INEFFECTIVE [None]
